FAERS Safety Report 21822126 (Version 2)
Quarter: 2024Q3

REPORT INFORMATION
  Report Type: Report from Study
  Country: US (occurrence: US)
  Receive Date: 20230105
  Receipt Date: 20240701
  Transmission Date: 20241017
  Serious: No
  Sender: ABBVIE
  Company Number: US-ABBVIE-4218318

PATIENT
  Age: 39 Year
  Sex: Male
  Weight: 92.986 kg

DRUGS (3)
  1. SKYRIZI [Suspect]
     Active Substance: RISANKIZUMAB-RZAA
     Indication: Psoriasis
     Dosage: FIRST ADMIN DATE JULY OR AUGUST 2022?LAST ADMIN DATE AUGUST OR SEPTEMBER 2023?FORM STRENGTH: 150 ...
     Route: 058
     Dates: start: 2022, end: 2023
  2. SKYRIZI [Suspect]
     Active Substance: RISANKIZUMAB-RZAA
     Indication: Psoriasis
     Dosage: FIRST ADMIN DATE AUGUST OR SEPTEMBER 2023?FORM STRENGTH: 150 MILLIGRAM
     Route: 058
  3. PAXLOVID [Concomitant]
     Active Substance: NIRMATRELVIR\RITONAVIR
     Indication: COVID-19

REACTIONS (2)
  - COVID-19 [Recovered/Resolved]
  - Feeling abnormal [Recovered/Resolved]

NARRATIVE: CASE EVENT DATE: 20221201
